FAERS Safety Report 5951490-4 (Version None)
Quarter: 2008Q4

REPORT INFORMATION
  Report Type: 
  Country: None (occurrence: None)
  Receive Date: 20081113
  Receipt Date: 20081104
  Transmission Date: 20090506
  Serious: Yes (Other)
  Sender: FDA-Public Use
  Company Number: US-BAYER-200814284BCC

PATIENT
  Age: 58 Year
  Sex: Male

DRUGS (6)
  1. ASPIRIN [Suspect]
     Indication: DRUG USE FOR UNKNOWN INDICATION
     Dates: start: 20081002
  2. ENTECAVIR [Concomitant]
     Indication: HEPATITIS B
     Dates: start: 20070128
  3. CEFAZOLIN [Concomitant]
     Dates: start: 20081006
  4. CIPROXAN [Concomitant]
     Dates: start: 20081008
  5. AMOXICILLIN [Concomitant]
     Dates: start: 20081008
  6. CLEXANE [Concomitant]
     Dates: start: 20081002

REACTIONS (2)
  - HAEMATURIA [None]
  - HAEMOLYTIC ANAEMIA [None]
